FAERS Safety Report 7755897-4 (Version None)
Quarter: 2011Q3

REPORT INFORMATION
  Report Type: 
  Country: None (occurrence: None)
  Receive Date: 20110915
  Receipt Date: 20110915
  Transmission Date: 20111222
  Serious: Yes (Life-Threatening)
  Sender: FDA-Public Use
  Company Number: None

PATIENT
  Age: 67 Year
  Sex: Male
  Weight: 74.1 kg

DRUGS (1)
  1. OLANZAPINE [Suspect]
     Indication: AGITATION
     Dosage: 5MG MG PRN IV
     Route: 042
     Dates: start: 20110810, end: 20110811

REACTIONS (2)
  - BRADYCARDIA [None]
  - CARDIO-RESPIRATORY ARREST [None]
